FAERS Safety Report 24024040 (Version 2)
Quarter: 2024Q3

REPORT INFORMATION
  Report Type: Report from Study
  Country: US (occurrence: US)
  Receive Date: 20240627
  Receipt Date: 20240710
  Transmission Date: 20241017
  Serious: No
  Sender: ROCHE
  Company Number: US-ROCHE-3401076

PATIENT
  Age: 73 Year
  Sex: Female
  Weight: 95.71 kg

DRUGS (1)
  1. ALECENSA [Suspect]
     Active Substance: ALECTINIB HYDROCHLORIDE
     Indication: Lung neoplasm malignant
     Dosage: 4 CAPSULE TWICE A DAY
     Route: 048
     Dates: start: 20230726

REACTIONS (2)
  - Off label use [Unknown]
  - No adverse event [Unknown]
